FAERS Safety Report 10417655 (Version 1)
Quarter: 2014Q3

REPORT INFORMATION
  Report Type: Spontaneous
  Country: US (occurrence: US)
  Receive Date: 20140829
  Receipt Date: 20140829
  Transmission Date: 20150326
  Serious: Yes (Other)
  Sender: FDA-Public Use
  Company Number: US-ASTRAZENECA-2014SE63734

PATIENT
  Sex: Female

DRUGS (3)
  1. NEXIUM [Suspect]
     Active Substance: ESOMEPRAZOLE MAGNESIUM
     Route: 048
     Dates: start: 2013
  2. UNSPECIFIED MEDICATION (UNKNOWN MANUFACTURER) [Suspect]
     Active Substance: UNSPECIFIED INGREDIENT
     Indication: PAIN
     Route: 065
  3. NEXIUM [Suspect]
     Active Substance: ESOMEPRAZOLE MAGNESIUM
     Route: 048

REACTIONS (3)
  - Oesophageal disorder [Unknown]
  - Back disorder [Unknown]
  - Abdominal discomfort [Unknown]
